FAERS Safety Report 8681518 (Version 6)
Quarter: 2015Q2

REPORT INFORMATION
  Report Type: Spontaneous
  Country: US (occurrence: US)
  Receive Date: 20120725
  Receipt Date: 20150505
  Transmission Date: 20150821
  Serious: Yes (Hospitalization, Other)
  Sender: FDA-Public Use
  Company Number: US-UCBSA-062025

PATIENT
  Age: 74 Year
  Sex: Male
  Weight: 52 kg

DRUGS (6)
  1. CENTRUM SILVER [Concomitant]
     Active Substance: VITAMINS
     Dosage: UNK UNK, ONCE DAILY (QD)
  2. KEPPRA XR [Suspect]
     Active Substance: LEVETIRACETAM
     Indication: AMYLOIDOSIS
  3. LISINOPRIL. [Concomitant]
     Active Substance: LISINOPRIL
  4. NAMEDA [Concomitant]
     Indication: MEMORY IMPAIRMENT
     Dosage: UNK UNK, 2X/DAY (BID)
  5. KEPPRA XR [Suspect]
     Active Substance: LEVETIRACETAM
     Indication: SEIZURE
     Dosage: 500MG 2 TABS LOT NO:93356; EXPIRY DATE: 31-DEC-2015, 29-DEC-2016
     Dates: start: 2006
  6. MEGACE [Concomitant]
     Active Substance: MEGESTROL ACETATE
     Dates: start: 201311

REACTIONS (5)
  - Seizure [Recovered/Resolved]
  - Memory impairment [Unknown]
  - Parkinson^s disease [Recovered/Resolved]
  - Weight decreased [Recovering/Resolving]
  - Myocardial infarction [Recovered/Resolved]

NARRATIVE: CASE EVENT DATE: 201308
